FAERS Safety Report 8850971 (Version 1)
Quarter: 2012Q4

REPORT INFORMATION
  Report Type: 
  Country: AU (occurrence: AU)
  Receive Date: 20121019
  Receipt Date: 20121019
  Transmission Date: 20130627
  Serious: Yes (Other)
  Sender: FDA-Public Use
  Company Number: PHHY2012AU092899

PATIENT
  Age: 92 Year
  Sex: Female

DRUGS (1)
  1. ACLASTA [Suspect]
     Dosage: 5 mg, UNK
     Route: 042
     Dates: start: 20111031

REACTIONS (3)
  - Transient ischaemic attack [Not Recovered/Not Resolved]
  - Device difficult to use [Not Recovered/Not Resolved]
  - Poor venous access [Not Recovered/Not Resolved]
